FAERS Safety Report 8613888-5 (Version None)
Quarter: 2012Q3

REPORT INFORMATION
  Report Type: 
  Country: None (occurrence: None)
  Receive Date: 20120823
  Receipt Date: 20120810
  Transmission Date: 20120928
  Serious: Yes (Life-Threatening)
  Sender: FDA-Public Use
  Company Number: GB-009507513-1208GBR006083

PATIENT

DRUGS (23)
  1. HEPSAL [Concomitant]
     Dosage: 50 DF, UNK
     Route: 042
     Dates: start: 20120330
  2. OMEPRAZOLE [Concomitant]
     Dosage: 40 MG, QD
     Route: 048
     Dates: start: 20120501
  3. BISOPROLOL FUMARATE [Concomitant]
     Dosage: 2.5 MG, BID
     Route: 048
     Dates: start: 20120320, end: 20120413
  4. DEXAMETHASONE [Concomitant]
     Indication: LYMPHADENOPATHY
     Dosage: 4.8 MG, TID
     Route: 042
     Dates: start: 20120512
  5. NYSTATIN [Concomitant]
     Dosage: 1 ML, QID
     Route: 048
     Dates: start: 20120412, end: 20120422
  6. RIFAMPICIN [Concomitant]
     Indication: MENINGITIS TUBERCULOUS
     Dosage: 600 MG, QD
     Route: 048
     Dates: start: 20111127
  7. THIAMIN HCL TAB [Concomitant]
     Dosage: 100 MG, TID
     Route: 048
     Dates: start: 20120320
  8. TRUVADA [Concomitant]
     Indication: HIV INFECTION
     Dosage: 1 DF, QD
     Route: 048
     Dates: start: 20120106, end: 20120326
  9. CACIT VITAMINE D3 [Concomitant]
     Dosage: 1 DF, QD
     Route: 048
     Dates: start: 20120322
  10. GENTAMICIN [Concomitant]
     Dosage: 240 MG, QD
     Route: 042
     Dates: start: 20120327, end: 20120329
  11. MIRTAZAPINE [Concomitant]
     Dosage: 30 MG, QD
     Route: 048
     Dates: start: 20120320
  12. ACETAMINOPHEN [Concomitant]
     Dosage: 1 G, QID
  13. OMEPRAZOLE [Concomitant]
     Dosage: 40 MG, BID
     Route: 042
     Dates: start: 20120320, end: 20120412
  14. ZOPICLONE [Concomitant]
     Dosage: 3.75 MG, QD
     Route: 048
     Dates: start: 20120409
  15. SULFAMETHOXAZOLE TRIMETHOPRIM [Concomitant]
     Dosage: 480 MG, QD
     Route: 048
     Dates: start: 20120416
  16. MEROPENEM [Concomitant]
     Dosage: 1 G, TID
     Route: 042
     Dates: start: 20120322, end: 20120405
  17. VALCYTE [Concomitant]
     Indication: CYTOMEGALOVIRUS INFECTION
     Dosage: 900 MG, QD
     Route: 048
     Dates: start: 20120112, end: 20120325
  18. GALFER [Concomitant]
     Dosage: 280 MG, QD
     Route: 048
     Dates: start: 20120522
  19. MOXIFLOXACIN HYDROCHLORIDE [Concomitant]
     Indication: MENINGITIS TUBERCULOUS
     Dosage: 400 MG, QD
     Route: 048
     Dates: start: 20120203
  20. ISENTRESS [Suspect]
     Indication: HIV INFECTION
     Dosage: 800 MG, BID
     Route: 048
     Dates: start: 20120105, end: 20120326
  21. GALFER [Concomitant]
     Dosage: 210 MG, BID
  22. TARGOCID [Concomitant]
     Dosage: 800 MG, QD
     Route: 042
     Dates: start: 20120507, end: 20120518
  23. TRIZIVIR [Concomitant]
     Indication: HIV INFECTION
     Dosage: 1 DF, BID
     Route: 048
     Dates: start: 20120426

REACTIONS (1)
  - GASTRIC HAEMORRHAGE [None]
